FAERS Safety Report 23430321 (Version 1)
Quarter: 2024Q1

REPORT INFORMATION
  Report Type: Spontaneous
  Country: US (occurrence: US)
  Receive Date: 20240123
  Receipt Date: 20240123
  Transmission Date: 20240409
  Serious: No
  Sender: FDA-Public Use
  Company Number: US-OTSUKA-2023_020588

PATIENT
  Sex: Male
  Weight: 81.65 kg

DRUGS (1)
  1. INQOVI [Suspect]
     Active Substance: CEDAZURIDINE\DECITABINE
     Indication: Product used for unknown indication
     Dosage: 35MG/100 MG (35 MG DECITABINE AND 100 MG CEDAZURIDINE)
     Route: 065

REACTIONS (1)
  - Full blood count abnormal [Unknown]
